FAERS Safety Report 26054724 (Version 1)
Quarter: 2025Q4

REPORT INFORMATION
  Report Type: Spontaneous
  Country: UA (occurrence: UA)
  Receive Date: 20251117
  Receipt Date: 20251117
  Transmission Date: 20260117
  Serious: Yes (Other)
  Sender: ROCHE
  Company Number: UA-ROCHE-10000432973

PATIENT
  Age: 42 Year
  Sex: Male

DRUGS (7)
  1. BEVACIZUMAB [Suspect]
     Active Substance: BEVACIZUMAB
     Indication: Rectosigmoid cancer
     Dosage: 4 COURSES OF FOLFIRINOX (1-2 COURSES W/ AVASTIN). 12 COURSES OF FOLFOX6 (10-12 COURSES W/ AVASTIN
     Route: 065
     Dates: start: 202212, end: 20240410
  2. CAPECITABINE [Suspect]
     Active Substance: CAPECITABINE
     Indication: Rectosigmoid cancer
     Dosage: 2 COURSES OF MCT WITH CAPECITABINE IN 05.2024-06.2024
     Route: 048
  3. CAPECITABINE\OXALIPLATIN [Suspect]
     Active Substance: CAPECITABINE\OXALIPLATIN
     Indication: Rectosigmoid cancer
     Dosage: 6 COURSES OF XELOX IN 07.2024-10.2024.
     Route: 065
     Dates: end: 202410
  4. XELODA [Concomitant]
     Active Substance: CAPECITABINE
     Indication: Rectosigmoid cancer
     Dosage: 1-3 COURSE OF KEYTRUDA + XELODA IN 22.08.2025-03.10.2025
     Route: 065
     Dates: start: 20250822, end: 20251003
  5. FLUOROURACIL\IRINOTECAN\LEUCOVORIN\OXALIPLATIN [Concomitant]
     Active Substance: FLUOROURACIL\IRINOTECAN\LEUCOVORIN\OXALIPLATIN
     Dosage: 4 COURSES OF FOLFIRINOX (1-2 COURSES WITH AVASTIN). 5 COURSES FOLFIRINOX 03.05.2023 - 30.06.2023
     Dates: start: 20230104, end: 20230630
  6. FLUOROURACIL\LEUCOVORIN CALCIUM\OXALIPLATIN [Concomitant]
     Active Substance: FLUOROURACIL\LEUCOVORIN CALCIUM\OXALIPLATIN
     Dosage: 12 COURSES OF FOLFOX6 (10-12 COURSES WITH AVASTIN)
     Dates: start: 20231106, end: 20240410
  7. KEYTRUDA [Concomitant]
     Active Substance: PEMBROLIZUMAB
     Dosage: 1-3 COURSE OF KEYTRUDA + XELODA
     Dates: start: 20250822, end: 20251003

REACTIONS (11)
  - Hepatectomy [Unknown]
  - Proctectomy [Unknown]
  - Hepatitis toxic [Unknown]
  - Metastases to liver [Unknown]
  - Ileal operation [Unknown]
  - Small intestinal haemorrhage [Unknown]
  - Rectal ulcer [Unknown]
  - Hernia repair [Unknown]
  - Pulmonary resection [Unknown]
  - Ureteral stent insertion [Unknown]
  - Ureteral stent removal [Unknown]

NARRATIVE: CASE EVENT DATE: 20230327
